FAERS Safety Report 23718880 (Version 3)
Quarter: 2024Q2

REPORT INFORMATION
  Report Type: Spontaneous
  Country: IE (occurrence: IE)
  Receive Date: 20240408
  Receipt Date: 20240604
  Transmission Date: 20240715
  Serious: Yes (Life-Threatening, Other)
  Sender: FDA-Public Use
  Company Number: None

PATIENT
  Age: 45 Year
  Sex: Female
  Weight: 57 kg

DRUGS (11)
  1. PROPOFOL [Interacting]
     Active Substance: PROPOFOL
     Indication: Anaesthesia
     Dosage: (PROPOFOL (GENERIC)) REPORTED AS A HIGH DOSE
     Route: 042
     Dates: start: 20240306, end: 20240306
  2. SODIUM CHLORIDE [Suspect]
     Active Substance: SODIUM CHLORIDE
     Indication: Surgery
     Dosage: (SODIUM CHLORIDE (G)) 1 LITRE
     Route: 065
     Dates: start: 20240306, end: 20240306
  3. SEVOFLURANE [Suspect]
     Active Substance: SEVOFLURANE
     Dosage: SEVOFLURANE (G)
     Route: 065
     Dates: start: 20240306
  4. CALCIUM CHLORIDE [Suspect]
     Active Substance: CALCIUM CHLORIDE
     Indication: Surgery
     Dosage: 10 ML (MILLILITRE) 1 DAILY
     Route: 042
     Dates: start: 20240306, end: 20240306
  5. TOPIRAMATE [Interacting]
     Active Substance: TOPIRAMATE
     Indication: Epilepsy
     Dosage: 125 MG (MILLIGRAM) PER 12 H (HOURS)
     Route: 048
  6. CALCIUM\VITAMIN D [Concomitant]
     Active Substance: CALCIUM\VITAMIN D
     Dosage: CALCIUM + VITAMIN D (G) (DOSAGE TEXT: 600MG / 400 UNITS OD)
     Route: 048
  7. FOLIC ACID [Concomitant]
     Active Substance: FOLIC ACID
     Dosage: 0.8 MG (MILLIGRAM) 1 DAILY
     Route: 048
  8. BRIVIACT [Concomitant]
     Active Substance: BRIVARACETAM
     Indication: Epilepsy
     Dosage: 125 MG (MILLIGRAM) PER 12 H (HOURS)
     Route: 048
  9. CENOBAMATE [Concomitant]
     Active Substance: CENOBAMATE
     Indication: Epilepsy
     Dosage: 250 MG (MILLIGRAM) 1 DAILY (DOSAGE TEXT: NOCTE)
     Route: 048
  10. CLOBAZAM [Concomitant]
     Active Substance: CLOBAZAM
     Indication: Epilepsy
     Dosage: 5 MG (MILLIGRAM) 1 DAILY (DOSAGE TEXT: NOCTE)
     Route: 048
  11. LACOSAMIDE [Concomitant]
     Active Substance: LACOSAMIDE
     Indication: Epilepsy
     Dosage: 200 MG (MILLIGRAM) PER 12 H (HOURS)
     Route: 048

REACTIONS (3)
  - Acidosis hyperchloraemic [Recovered/Resolved]
  - Metabolic acidosis [Recovered/Resolved]
  - Drug interaction [Recovered/Resolved]

NARRATIVE: CASE EVENT DATE: 20240306
